FAERS Safety Report 7780788-2 (Version None)
Quarter: 2011Q3

REPORT INFORMATION
  Report Type: 
  Country: None (occurrence: None)
  Receive Date: 20110927
  Receipt Date: 20110922
  Transmission Date: 20111222
  Serious: Yes (Other)
  Sender: FDA-Public Use
  Company Number: US-PFIZER INC-2011226357

PATIENT
  Sex: Male
  Weight: 92.971 kg

DRUGS (4)
  1. POTASSIUM CHLORIDE [Concomitant]
     Indication: BLOOD POTASSIUM DECREASED
     Dosage: 10 MEQ, 3X/DAY
  2. HYDROCHLOROTHIAZIDE [Concomitant]
     Indication: BLOOD PRESSURE ABNORMAL
     Dosage: 25 MG, DAILY
  3. ZOSYN [Suspect]
     Indication: STAPHYLOCOCCAL INFECTION
     Dosage: 13.5 G, DAILY
     Dates: start: 20110907
  4. KEPPRA [Suspect]
     Indication: CONVULSION
     Dosage: 1500 MG, 2X/DAY
     Route: 048

REACTIONS (1)
  - CONVULSION [None]
